FAERS Safety Report 13917991 (Version 2)
Quarter: 2019Q4

REPORT INFORMATION
  Report Type: Report from Study
  Country: US (occurrence: US)
  Receive Date: 20170829
  Receipt Date: 20191115
  Transmission Date: 20200122
  Serious: Yes (Other)
  Sender: FDA-Public Use
  Company Number: US-SA-2016SA201685

PATIENT
  Age: 12 Year
  Sex: Male

DRUGS (4)
  1. AGALSIDASE BETA [Suspect]
     Active Substance: AGALSIDASE BETA
     Indication: FABRY^S DISEASE
     Dosage: DOSE/UNIT : 50:00 FREQUENCY:Q2
     Route: 041
     Dates: start: 20081125
  2. AGALSIDASE BETA [Suspect]
     Active Substance: AGALSIDASE BETA
     Dosage: 30 MG,QOW
     Route: 041
     Dates: start: 20150113, end: 20161015
  3. AGALSIDASE BETA [Suspect]
     Active Substance: AGALSIDASE BETA
     Dosage: 30 MG,QOW
     Route: 041
     Dates: start: 20161017
  4. AGALSIDASE BETA [Suspect]
     Active Substance: AGALSIDASE BETA
     Dosage: DOSE/UNIT : 35:00 FREQUENCY:Q2
     Route: 041
     Dates: start: 20171110

REACTIONS (7)
  - Epiphyseal injury [Recovering/Resolving]
  - Humerus fracture [Recovering/Resolving]
  - Infusion site extravasation [Unknown]
  - Pyrexia [Unknown]
  - Nasopharyngitis [Unknown]
  - Cough [Unknown]
  - Poor venous access [Unknown]

NARRATIVE: CASE EVENT DATE: 20161015
